FAERS Safety Report 4323333-6 (Version None)
Quarter: 2004Q1

REPORT INFORMATION
  Report Type: 
  Country: None (occurrence: None)
  Receive Date: 20040322
  Receipt Date: 20040304
  Transmission Date: 20041129
  Serious: Yes (Hospitalization)
  Sender: FDA-Public Use
  Company Number: S04-GER-01088-01

PATIENT
  Age: 23 Year
  Sex: Male

DRUGS (2)
  1. CIPRAMIL (CITALOPRAM HYDROBROMIDE) [Suspect]
     Dosage: 20 MG QD PO
     Route: 048
     Dates: start: 20031118, end: 20031127
  2. RISPERDAL [Suspect]
     Dosage: 2 MG QD PO
     Route: 048
     Dates: start: 20031120, end: 20031121

REACTIONS (5)
  - DYSKINESIA [None]
  - FEAR [None]
  - OROPHARYNGEAL SPASM [None]
  - SUFFOCATION FEELING [None]
  - TONGUE SPASM [None]
